FAERS Safety Report 9056178 (Version 1)
Quarter: 2013Q1

REPORT INFORMATION
  Report Type: Spontaneous
  Country: IT (occurrence: IT)
  Receive Date: 20130205
  Receipt Date: 20130205
  Transmission Date: 20140127
  Serious: Yes (Hospitalization)
  Sender: FDA-Public Use
  Company Number: PHHY2013IT009244

PATIENT
  Age: 82 Year
  Sex: Male

DRUGS (2)
  1. CLOPIDOGREL [Suspect]
     Dosage: 100 MG, PER DAY
     Dates: start: 20120101, end: 20130103
  2. ACETYLSALICYLIC ACID [Suspect]
     Dosage: 75 MG, PER DAY
     Route: 048
     Dates: start: 20120101, end: 20130103

REACTIONS (2)
  - Anaemia [Recovering/Resolving]
  - Melaena [Recovering/Resolving]
